FAERS Safety Report 4681812-6 (Version None)
Quarter: 2005Q2

REPORT INFORMATION
  Report Type: 
  Country: None (occurrence: None)
  Receive Date: 20050602
  Receipt Date: 20050517
  Transmission Date: 20051028
  Serious: Yes (Hospitalization)
  Sender: FDA-Public Use
  Company Number: 214887

PATIENT
  Age: 72 Year
  Sex: Female
  Weight: 69 kg

DRUGS (2)
  1. HERCEPTIN [Suspect]
     Indication: BREAST CANCER
     Dosage: Q3W, INTRAVENOUS
     Route: 042
     Dates: start: 20030715, end: 20040707
  2. POTASSIUM IODIDE (POTASSIUM IODIDE) [Concomitant]

REACTIONS (1)
  - HYPERTENSION [None]
